FAERS Safety Report 9785083 (Version 1)
Quarter: 2013Q4

REPORT INFORMATION
  Report Type: Spontaneous
  Country: US (occurrence: US)
  Receive Date: 20131227
  Receipt Date: 20131227
  Transmission Date: 20140711
  Serious: Yes (Other)
  Sender: FDA-Public Use
  Company Number: US-BAYER-2013-157169

PATIENT
  Sex: Female

DRUGS (3)
  1. BETASERON [Suspect]
     Dosage: 0.3 MG, QOD
     Route: 058
  2. PROZAC [Concomitant]
     Dosage: 10 MG, UNK
  3. NORTRIPTYLIN [Concomitant]
     Dosage: 10 MG, UNK

REACTIONS (3)
  - Multiple sclerosis relapse [Unknown]
  - Memory impairment [Unknown]
  - Cognitive disorder [Unknown]
